FAERS Safety Report 9918163 (Version 1)
Quarter: 2014Q1

REPORT INFORMATION
  Report Type: Spontaneous
  Country: US (occurrence: US)
  Receive Date: 20140223
  Receipt Date: 20140223
  Transmission Date: 20141002
  Serious: No
  Sender: FDA-Public Use
  Company Number: US-ALLERGAN-1309679US

PATIENT
  Age: 54 Year
  Sex: Female

DRUGS (3)
  1. OZURDEX [Suspect]
     Indication: BIRDSHOT CHORIORETINOPATHY
     Dosage: 0.7 MG, SINGLE
     Route: 031
     Dates: start: 201304, end: 201304
  2. HUMULIN NPH [Concomitant]
     Indication: TYPE 1 DIABETES MELLITUS
  3. HUMALOG [Concomitant]
     Indication: TYPE 1 DIABETES MELLITUS

REACTIONS (6)
  - Visual acuity reduced [Not Recovered/Not Resolved]
  - Photopsia [Unknown]
  - Off label use [Unknown]
  - Visual impairment [Unknown]
  - Complication of device insertion [Unknown]
  - Complication of device insertion [Unknown]
